FAERS Safety Report 5866458-6 (Version None)
Quarter: 2008Q3

REPORT INFORMATION
  Report Type: 
  Country: None (occurrence: None)
  Receive Date: 20080902
  Receipt Date: 20080826
  Transmission Date: 20090109
  Serious: Yes (Death, Hospitalization)
  Sender: FDA-Public Use
  Company Number: US-JNJFOC-20080805654

PATIENT
  Sex: Female

DRUGS (2)
  1. REMICADE [Suspect]
     Indication: PSORIASIS
     Dosage: 2 INFUSIONS
     Route: 042
  2. ARAVA [Concomitant]
     Indication: PSORIASIS

REACTIONS (3)
  - HEPATIC FAILURE [None]
  - SEPTIC SHOCK [None]
  - SKIN DISCOLOURATION [None]
